FAERS Safety Report 11046590 (Version 2)
Quarter: 2015Q3

REPORT INFORMATION
  Report Type: Spontaneous
  Country: CH (occurrence: CH)
  Receive Date: 20150420
  Receipt Date: 20150702
  Transmission Date: 20151125
  Serious: Yes (Hospitalization)
  Sender: FDA-Public Use
  Company Number: CH-ROCHE-1564338

PATIENT
  Age: 87 Year
  Sex: Female

DRUGS (2)
  1. HERCEPTIN [Suspect]
     Active Substance: TRASTUZUMAB
     Indication: INVASIVE DUCTAL BREAST CARCINOMA
     Route: 065
     Dates: start: 201412
  2. AROMASIN [Suspect]
     Active Substance: EXEMESTANE
     Indication: INVASIVE DUCTAL BREAST CARCINOMA
     Route: 065
     Dates: start: 201412

REACTIONS (4)
  - Diarrhoea [Unknown]
  - Fall [Unknown]
  - Upper limb fracture [Not Recovered/Not Resolved]
  - Skin oedema [Unknown]

NARRATIVE: CASE EVENT DATE: 20150114
